FAERS Safety Report 21411575 (Version 1)
Quarter: 2022Q4

REPORT INFORMATION
  Report Type: Spontaneous
  Country: DE (occurrence: DE)
  Receive Date: 20221005
  Receipt Date: 20221005
  Transmission Date: 20230112
  Serious: Yes (Hospitalization)
  Sender: FDA-Public Use
  Company Number: DE-ADRED-08068-01

PATIENT
  Age: 70 Year
  Sex: Male
  Weight: 100 kg

DRUGS (10)
  1. METFORMIN [Suspect]
     Active Substance: METFORMIN HYDROCHLORIDE
     Indication: Product used for unknown indication
     Dosage: 2 DOSAGE FORMS DAILY; 1000 MG, 1-0-1-0, UNIT DOSE : 1 DF , FREQUENCY : BD, MEDICATION ERRORS
  2. DULAGLUTIDE [Suspect]
     Active Substance: DULAGLUTIDE
     Indication: Product used for unknown indication
     Dosage: 1.5 MG, WEDNESDAY, PRE-FILLED SYRINGES, MEDICATION ERRORS
  3. EMPAGLIFLOZIN [Suspect]
     Active Substance: EMPAGLIFLOZIN
     Indication: Product used for unknown indication
     Dosage: 1 DOSAGE FORMS DAILY; 25 MG, 1-0-0-0, UNIT DOSE : 1 DF , FREQUENCY : OD, MEDICATION ERRORS
  4. ATORVASTATIN [Concomitant]
     Active Substance: ATORVASTATIN
     Indication: Product used for unknown indication
     Dosage: 1 DOSAGE FORMS DAILY; 40 MG, 0-0-1-0, UNIT DOSE : 1 DF , FREQUENCY : OD
  5. OMEPRAZOLE [Concomitant]
     Active Substance: OMEPRAZOLE
     Indication: Product used for unknown indication
     Dosage: 1 DOSAGE FORMS DAILY; 20 MG, 1-0-0-0, UNIT DOSE : 1 DF , FREQUENCY : OD
  6. CANDESARTAN CILEXETIL\HYDROCHLOROTHIAZIDE [Concomitant]
     Active Substance: CANDESARTAN CILEXETIL\HYDROCHLOROTHIAZIDE
     Indication: Product used for unknown indication
     Dosage: 1 DOSAGE FORMS DAILY; 32|12.5 MG, 1-0-0-0, UNIT DOSE : 1 DF , FREQUENCY : OD
  7. METOPROLOL [Concomitant]
     Active Substance: METOPROLOL
     Indication: Product used for unknown indication
     Dosage: 2 DOSAGE FORMS DAILY; 47.5 MG, 1-0-1-0, UNIT DOSE : 1 DF , FREQUENCY : BD
  8. EDOXABAN [Concomitant]
     Active Substance: EDOXABAN
     Indication: Product used for unknown indication
     Dosage: 1 DOSAGE FORMS DAILY; 60 MG, 1-0-0-0, UNIT DOSE : 1 DF , FREQUENCY : OD
  9. AMLODIPINE [Concomitant]
     Active Substance: AMLODIPINE BESYLATE
     Indication: Product used for unknown indication
     Dosage: 2 DOSAGE FORMS DAILY; 10 MG, 1-0-1-0, UNIT DOSE : 1 DF , FREQUENCY : BD
  10. LEVOTHYROXINE SODIUM [Concomitant]
     Active Substance: LEVOTHYROXINE SODIUM
     Indication: Product used for unknown indication
     Dosage: 1 DOSAGE FORMS DAILY; 100 MCG, 1-0-0-0, UNIT DOSE : 1 DF , FREQUENCY : OD

REACTIONS (3)
  - Inflammation [Unknown]
  - Ulcer [Unknown]
  - Product monitoring error [Unknown]
